FAERS Safety Report 15136525 (Version 1)
Quarter: 2018Q3

REPORT INFORMATION
  Report Type: Report from Study
  Country: US (occurrence: US)
  Receive Date: 20180712
  Receipt Date: 20180712
  Transmission Date: 20181010
  Serious: Yes (Death)
  Sender: FDA-Public Use
  Company Number: US-TAKEDA-2018TUS022110

PATIENT
  Sex: Male

DRUGS (1)
  1. PONATINIB [Suspect]
     Active Substance: PONATINIB
     Indication: ACUTE LYMPHOCYTIC LEUKAEMIA
     Dosage: 30 MG, QD
     Route: 048
     Dates: start: 20180123

REACTIONS (1)
  - Death [Fatal]
